FAERS Safety Report 4495126-0 (Version None)
Quarter: 2004Q4

REPORT INFORMATION
  Report Type: 
  Country: None (occurrence: None)
  Receive Date: 20041104
  Receipt Date: 20031030
  Transmission Date: 20050328
  Serious: No
  Sender: FDA-Public Use
  Company Number: 6611

PATIENT
  Age: 54 Year
  Sex: Female

DRUGS (4)
  1. PACLITAXEL [Suspect]
     Indication: OVARIAN CANCER
     Dosage: 175 MG/M2 PER_CYCLE IV
     Route: 042
     Dates: end: 20031016
  2. DEXAMETHASONE [Concomitant]
  3. FAMOTIDINE [Concomitant]
  4. BENADRYL COMPLEX [Concomitant]

REACTIONS (5)
  - HYPOAESTHESIA [None]
  - INJECTION SITE ANAESTHESIA [None]
  - INJECTION SITE REACTION [None]
  - OEDEMA PERIPHERAL [None]
  - PLATELET COUNT DECREASED [None]
